FAERS Safety Report 10932752 (Version 1)
Quarter: 2015Q1

REPORT INFORMATION
  Report Type: Spontaneous
  Country: US (occurrence: None)
  Receive Date: 20150318
  Receipt Date: 20150318
  Transmission Date: 20150721
  Serious: No
  Sender: FDA-Public Use
  Company Number: 1210513-2015-00101

PATIENT
  Sex: Male

DRUGS (1)
  1. ALOESENSE TOOTHPASTE [Suspect]
     Active Substance: SODIUM FLUORIDE
     Indication: DENTAL CARIES
     Dosage: DENTAL 004
     Route: 004

REACTIONS (1)
  - Oral disorder [None]

NARRATIVE: CASE EVENT DATE: 20111016
